FAERS Safety Report 11044524 (Version 1)
Quarter: 2015Q2

REPORT INFORMATION
  Report Type: Spontaneous
  Country: GB (occurrence: GB)
  Receive Date: 20150417
  Receipt Date: 20150417
  Transmission Date: 20150821
  Serious: Yes (Hospitalization, Other)
  Sender: FDA-Public Use
  Company Number: GB-009507513-1504GBR017386

PATIENT
  Age: 33 Year
  Sex: Female
  Weight: 87 kg

DRUGS (3)
  1. RALTEGRAVIR POTASSIUM [Suspect]
     Active Substance: RALTEGRAVIR POTASSIUM
     Indication: HIV ANTIBODY POSITIVE
     Dosage: 400 MG, BID
     Route: 048
     Dates: start: 20140704, end: 20140731
  2. DARUNAVIR [Suspect]
     Active Substance: DARUNAVIR
     Indication: HIV ANTIBODY POSITIVE
     Dosage: 800 MG, QD
     Route: 048
     Dates: start: 20140704, end: 20140728
  3. OLANZAPINE. [Concomitant]
     Active Substance: OLANZAPINE
     Dosage: UNK
     Route: 065

REACTIONS (5)
  - Nausea [Unknown]
  - Malaise [Unknown]
  - Fatigue [Unknown]
  - Abdominal pain upper [Unknown]
  - Transaminases increased [Recovered/Resolved]

NARRATIVE: CASE EVENT DATE: 20140724
